FAERS Safety Report 24426715 (Version 1)
Quarter: 2024Q4

REPORT INFORMATION
  Report Type: Spontaneous
  Country: US (occurrence: US)
  Receive Date: 20241011
  Receipt Date: 20241011
  Transmission Date: 20250114
  Serious: Yes (Hospitalization, Other)
  Sender: DR REDDYS
  Company Number: US-DRL-USA-LIT/USA/24/0014798

PATIENT
  Age: 35 Year
  Sex: Female

DRUGS (1)
  1. EPHEDRINE [Suspect]
     Active Substance: EPHEDRINE
     Indication: Hypotension

REACTIONS (3)
  - Exposure during pregnancy [Unknown]
  - Bradycardia [Unknown]
  - Normal newborn [Unknown]
